FAERS Safety Report 8091513-2 (Version None)
Quarter: 2012Q1

REPORT INFORMATION
  Report Type: 
  Country: None (occurrence: None)
  Receive Date: 20120131
  Receipt Date: 20120123
  Transmission Date: 20120608
  Serious: Yes (Other)
  Sender: FDA-Public Use
  Company Number: US-PFIZER INC-2012018631

PATIENT
  Sex: Male
  Weight: 92.971 kg

DRUGS (8)
  1. LOVASTATIN [Concomitant]
     Indication: BLOOD CHOLESTEROL INCREASED
     Dosage: ONE TABLET ONCE AT BEDTIME, 1X/DAY
  2. JANUVIA [Concomitant]
     Indication: DIABETES MELLITUS
     Dosage: ONE TABLET, 1X/DAY
  3. VIAGRA [Suspect]
     Indication: ERECTILE DYSFUNCTION
     Dosage: 100 MG, AS NEEDED
     Route: 048
     Dates: start: 20080101
  4. LISINOPRIL [Concomitant]
     Indication: HYPERTENSION
     Dosage: ONE TABLET , 1X/DAY
  5. PRANDIN [Concomitant]
     Indication: DIABETES MELLITUS
     Dosage: ONE TABLET, 2X/DAY
  6. METFORMIN [Concomitant]
     Indication: DIABETES MELLITUS
     Dosage: TWO TABLET, 2X/DAY
  7. ASPIRIN [Concomitant]
     Indication: ANTICOAGULANT THERAPY
     Dosage: 81 MG, 1X/DAY
  8. TRICOR [Concomitant]
     Indication: BLOOD TRIGLYCERIDES ABNORMAL
     Dosage: ONE TABLET , 1X/DAY

REACTIONS (3)
  - VISUAL BRIGHTNESS [None]
  - BLOOD PRESSURE DECREASED [None]
  - GOUT [None]
